FAERS Safety Report 18066116 (Version 1)
Quarter: 2020Q3

REPORT INFORMATION
  Report Type: Report from Study
  Country: GB (occurrence: GB)
  Receive Date: 20200724
  Receipt Date: 20200724
  Transmission Date: 20201103
  Serious: Yes (Hospitalization)
  Sender: FDA-Public Use
  Company Number: GB-EMD SERONO-9168064

PATIENT
  Age: 51 Year
  Sex: Female

DRUGS (3)
  1. MAVENCLAD [Suspect]
     Active Substance: CLADRIBINE
     Indication: MULTIPLE SCLEROSIS
     Dosage: FIRST YEAR FIRST WEEK THERAPY: TWO TABLETS ON DAYS 1 TO 5.
     Route: 048
     Dates: start: 20200302
  2. GABAPENTIN. [Concomitant]
     Active Substance: GABAPENTIN
     Indication: PRODUCT USED FOR UNKNOWN INDICATION
  3. MAVENCLAD [Suspect]
     Active Substance: CLADRIBINE
     Dosage: FIRST YEAR SECOND WEEK THERAPY: TWO TABLETS ON DAY 1 TO 4 AND ONE TABLET ON DAY 5.
     Route: 048
     Dates: end: 20200619

REACTIONS (3)
  - Multiple sclerosis relapse [Not Recovered/Not Resolved]
  - Blood iron decreased [Unknown]
  - Blood sodium decreased [Unknown]
